FAERS Safety Report 13641040 (Version 3)
Quarter: 2019Q2

REPORT INFORMATION
  Report Type: Spontaneous
  Country: US (occurrence: US)
  Receive Date: 20170612
  Receipt Date: 20190429
  Transmission Date: 20190711
  Serious: Yes (Hospitalization, Other)
  Sender: FDA-Public Use
  Company Number: US-ASTRAZENECA-2017SE59513

PATIENT
  Age: 14738 Day
  Sex: Female
  Weight: 89.8 kg

DRUGS (27)
  1. CARVEDILOL. [Concomitant]
     Active Substance: CARVEDILOL
     Dosage: 500.0MG UNKNOWN
     Dates: start: 20151208
  2. WARFARIN [Concomitant]
     Active Substance: WARFARIN
     Dosage: 500.0MG UNKNOWN
     Dates: start: 20151208
  3. ETODOLAC. [Concomitant]
     Active Substance: ETODOLAC
     Dosage: 500.0MG UNKNOWN
     Dates: start: 20151208
  4. KOMBIGLYZE XR [Suspect]
     Active Substance: METFORMIN HYDROCHLORIDE\SAXAGLIPTIN HYDROCHLORIDE
     Indication: DIABETES MELLITUS
     Route: 048
     Dates: start: 2015
  5. LISINOPRIL. [Concomitant]
     Active Substance: LISINOPRIL
     Dosage: 2.5MG UNKNOWN
     Dates: start: 20150423
  6. KOMBIGLYZE XR [Suspect]
     Active Substance: METFORMIN HYDROCHLORIDE\SAXAGLIPTIN HYDROCHLORIDE
     Indication: DIABETES MELLITUS
     Dosage: 5-1000 MG, ONE TABLET DAILY
     Route: 048
     Dates: start: 20150611
  7. CARVEDILOL. [Concomitant]
     Active Substance: CARVEDILOL
     Dosage: 3.12MG UNKNOWN
     Dates: start: 20150709
  8. CYCLOBENZAPRINE. [Concomitant]
     Active Substance: CYCLOBENZAPRINE
     Dosage: 10.0MG UNKNOWN
     Dates: start: 20150130
  9. WARFARIN [Concomitant]
     Active Substance: WARFARIN
     Dosage: 5.0MG UNKNOWN
     Dates: start: 20150606
  10. METFORMIN [Concomitant]
     Active Substance: METFORMIN HYDROCHLORIDE
     Dosage: 500.0MG UNKNOWN
     Dates: start: 20151208
  11. HYDROCODONE [Concomitant]
     Active Substance: HYDROCODONE
     Dates: start: 20141010
  12. CLONAZEPAM. [Concomitant]
     Active Substance: CLONAZEPAM
     Dosage: 0.5MG UNKNOWN
     Dates: start: 20140902
  13. ETODOLAC. [Concomitant]
     Active Substance: ETODOLAC
     Dosage: 500.0MG UNKNOWN
  14. CLARITHROMYCIN. [Concomitant]
     Active Substance: CLARITHROMYCIN
     Dosage: 500.0MG UNKNOWN
     Dates: start: 20140408
  15. ENOXAPARIN [Concomitant]
     Active Substance: ENOXAPARIN
     Dosage: 100MG/ML
     Dates: start: 20150606
  16. LEVOFLOXACIN. [Concomitant]
     Active Substance: LEVOFLOXACIN
     Dosage: 750.0MG UNKNOWN
     Dates: start: 20140331
  17. ONGLYZA [Suspect]
     Active Substance: SAXAGLIPTIN HYDROCHLORIDE
     Route: 048
     Dates: start: 2015
  18. FUROSEMIDE. [Concomitant]
     Active Substance: FUROSEMIDE
     Dosage: 40.0MG UNKNOWN
     Dates: start: 20150617
  19. TRAMADOL. [Concomitant]
     Active Substance: TRAMADOL
     Dosage: 50.0MG UNKNOWN
     Dates: start: 20150617
  20. CIPROFLOXACIN. [Concomitant]
     Active Substance: CIPROFLOXACIN
     Dosage: 500.0MG UNKNOWN
     Dates: start: 20131007
  21. KOMBIGLYZE XR [Suspect]
     Active Substance: METFORMIN HYDROCHLORIDE\SAXAGLIPTIN HYDROCHLORIDE
     Indication: DIABETES MELLITUS
     Dosage: 5-500 MG, ONE TABLET DAILY
     Route: 048
     Dates: start: 20130719
  22. KOMBIGLYZE XR [Suspect]
     Active Substance: METFORMIN HYDROCHLORIDE\SAXAGLIPTIN HYDROCHLORIDE
     Indication: DIABETES MELLITUS
     Dosage: 5-1000 MG,
     Route: 048
     Dates: start: 20130729, end: 20150611
  23. ATORVASTATIN [Concomitant]
     Active Substance: ATORVASTATIN
     Dosage: 40.0MG UNKNOWN
     Dates: start: 20150805
  24. LANTUS SOLOSTAR [Concomitant]
     Active Substance: INSULIN GLARGINE
     Dates: start: 20130228
  25. FARXIGA [Concomitant]
     Active Substance: DAPAGLIFLOZIN PROPANEDIOL
     Dosage: 10.0MG UNKNOWN
     Dates: start: 20150303
  26. PHENAZOPYRIDINE. [Concomitant]
     Active Substance: PHENAZOPYRIDINE
     Dosage: 200.0MG UNKNOWN
     Dates: start: 20150423
  27. METHYLPREDNISOLONE. [Concomitant]
     Active Substance: METHYLPREDNISOLONE
     Dosage: 4.0MG UNKNOWN
     Dates: start: 20140408

REACTIONS (6)
  - Cardiac failure congestive [Unknown]
  - Acute left ventricular failure [Unknown]
  - Cardiovascular disorder [Unknown]
  - Cardiac failure [Unknown]
  - Myocardial infarction [Unknown]
  - Congestive cardiomyopathy [Unknown]

NARRATIVE: CASE EVENT DATE: 20150602
